FAERS Safety Report 25370293 (Version 1)
Quarter: 2025Q2

REPORT INFORMATION
  Report Type: Spontaneous
  Country: US (occurrence: US)
  Receive Date: 20250528
  Receipt Date: 20250528
  Transmission Date: 20250717
  Serious: No
  Sender: SANOFI AVENTIS
  Company Number: US-SA-2025SA149469

PATIENT
  Age: 34 Year
  Sex: Female

DRUGS (1)
  1. DUPIXENT [Suspect]
     Active Substance: DUPILUMAB
     Indication: Eosinophilic oesophagitis
     Dosage: 300 MG, QW
     Route: 058
     Dates: start: 202501

REACTIONS (6)
  - Dyspepsia [Not Recovered/Not Resolved]
  - Rebound effect [Not Recovered/Not Resolved]
  - Dysphagia [Not Recovered/Not Resolved]
  - Rebound effect [Not Recovered/Not Resolved]
  - Gingival swelling [Not Recovered/Not Resolved]
  - Rebound effect [Not Recovered/Not Resolved]

NARRATIVE: CASE EVENT DATE: 20250501
